FAERS Safety Report 21358836 (Version 1)
Quarter: 2022Q3

REPORT INFORMATION
  Report Type: Spontaneous
  Country: GB (occurrence: GB)
  Receive Date: 20220921
  Receipt Date: 20220921
  Transmission Date: 20221027
  Serious: Yes (Other)
  Sender: FDA-Public Use
  Company Number: None

PATIENT
  Age: 82 Year
  Sex: Female
  Weight: 58 kg

DRUGS (9)
  1. CITALOPRAM [Suspect]
     Active Substance: CITALOPRAM HYDROBROMIDE
     Indication: Ill-defined disorder
     Dosage: UNK
     Route: 065
     Dates: start: 20220915
  2. ATORVASTATIN [Concomitant]
     Active Substance: ATORVASTATIN
     Indication: Ill-defined disorder
     Dosage: UNK UNK, QD (TAKE ONE DAILY)
     Route: 065
     Dates: start: 20210907
  3. CITALOPRAM [Concomitant]
     Active Substance: CITALOPRAM HYDROBROMIDE
     Indication: Ill-defined disorder
     Dosage: UNK UNK, QD (TAKE ONE ONCE DAILY  )
     Route: 065
     Dates: start: 20220906
  4. CLOPIDOGREL [Concomitant]
     Active Substance: CLOPIDOGREL BISULFATE
     Indication: Ill-defined disorder
     Dosage: UNK UNK, QD (TAKE ONE ONCE DAILY)
     Route: 065
     Dates: start: 20210907
  5. GENTAMICIN [Concomitant]
     Active Substance: GENTAMICIN
     Indication: Ill-defined disorder
     Dosage: (EYE) PUT ONE OR TWO DROPS IN THE AFFECTED EYE
     Route: 065
     Dates: start: 20220628, end: 20220705
  6. LISINOPRIL [Concomitant]
     Active Substance: LISINOPRIL
     Indication: Ill-defined disorder
     Dosage: UNK UNK, QD (TAKE ONE DAILY ALONGSIDE THE 20MG TABLET TO MAK)
     Route: 065
     Dates: start: 20210920
  7. ACETAMINOPHEN [Concomitant]
     Active Substance: ACETAMINOPHEN
     Indication: Ill-defined disorder
     Dosage: UNK UNK, PRN ( (TAKE TWO FOUR TIMES/DAY WHEN REQUIRED))
     Route: 065
     Dates: start: 20190724
  8. PROCHLORPERAZINE [Concomitant]
     Active Substance: PROCHLORPERAZINE
     Indication: Ill-defined disorder
     Dosage: UNK, PRN (1 TDS PRN)
     Route: 065
     Dates: start: 20220718, end: 20220728
  9. CARBOMER [Concomitant]
     Active Substance: CARBOMER
     Indication: Ill-defined disorder
     Dosage: 1 DROP, PRN  TO MAINTAIN TEAR FILM
     Route: 065
     Dates: start: 20190724

REACTIONS (1)
  - Hypoaesthesia [Recovering/Resolving]

NARRATIVE: CASE EVENT DATE: 20220915
